FAERS Safety Report 25876455 (Version 1)
Quarter: 2025Q4

REPORT INFORMATION
  Report Type: Spontaneous
  Country: GB (occurrence: GB)
  Receive Date: 20251003
  Receipt Date: 20251003
  Transmission Date: 20260118
  Serious: Yes (Other)
  Sender: SUNOVION
  Company Number: GB-CNX THERAPEUTICS-2025CNX009952

PATIENT
  Age: 27 Year
  Sex: Male

DRUGS (1)
  1. LATUDA [Suspect]
     Active Substance: LURASIDONE HYDROCHLORIDE
     Indication: Psychotic disorder
     Dosage: UNK

REACTIONS (2)
  - Sinus arrhythmia [Unknown]
  - Sinus bradycardia [Unknown]
